FAERS Safety Report 16689777 (Version 2)
Quarter: 2019Q3

REPORT INFORMATION
  Report Type: Spontaneous
  Country: CN (occurrence: CN)
  Receive Date: 20190809
  Receipt Date: 20190819
  Transmission Date: 20191004
  Serious: Yes (Other)
  Sender: FDA-Public Use
  Company Number: CN-ANIPHARMA-2019-CN-000141

PATIENT
  Age: 33 Year
  Sex: Female

DRUGS (5)
  1. PALBOCICLIB [Suspect]
     Active Substance: PALBOCICLIB
     Dosage: UNK
     Route: 048
  2. EXEMESTANE. [Concomitant]
     Active Substance: EXEMESTANE
     Dosage: UNK
     Route: 048
  3. ARIMIDEX [Suspect]
     Active Substance: ANASTROZOLE
     Indication: BREAST CANCER METASTATIC
     Dosage: UNKNOWN
     Route: 048
  4. ZOLADEX [Suspect]
     Active Substance: GOSERELIN ACETATE
     Indication: BREAST CANCER
     Dosage: 3.6 MG MONTH
     Route: 058
     Dates: start: 201712, end: 201812
  5. FASLODEX [Suspect]
     Active Substance: FULVESTRANT
     Dosage: 2 VIALS AT A TIME
     Route: 030
     Dates: start: 201808, end: 201812

REACTIONS (6)
  - Metastases to lung [Unknown]
  - Malignant neoplasm progression [Unknown]
  - Metastases to bone [Unknown]
  - Metastases to ovary [Unknown]
  - Metastases to pelvis [Unknown]
  - Hormone level abnormal [Not Recovered/Not Resolved]
